FAERS Safety Report 18749107 (Version 4)
Quarter: 2021Q2

REPORT INFORMATION
  Report Type: Spontaneous
  Country: PT (occurrence: PT)
  Receive Date: 20210116
  Receipt Date: 20210624
  Transmission Date: 20210717
  Serious: Yes (Hospitalization, Other)
  Sender: FDA-Public Use
  Company Number: PT-AUROBINDO-AUR-APL-2021-001969

PATIENT
  Age: 8 Decade
  Sex: Male

DRUGS (18)
  1. LINEZOLID. [Suspect]
     Active Substance: LINEZOLID
     Indication: BRAIN ABSCESS
     Dosage: UNK
     Route: 065
     Dates: end: 201807
  2. GENTAMICIN. [Suspect]
     Active Substance: GENTAMICIN
     Indication: BRAIN ABSCESS
     Dosage: UNK
     Route: 042
     Dates: start: 201804, end: 201907
  3. AMOXICILLIN CLAVULANIC ACID [Concomitant]
     Active Substance: AMOXICILLIN\CLAVULANIC ACID
     Indication: PNEUMONIA NECROTISING
     Dosage: UNK
     Route: 042
  4. RIFAMPICIN [Concomitant]
     Active Substance: RIFAMPIN
     Indication: PNEUMONIA NECROTISING
     Dosage: UNK
     Route: 042
  5. AZITHROMYCIN ANHYDROUS. [Concomitant]
     Active Substance: AZITHROMYCIN ANHYDROUS
     Indication: PNEUMONIA NECROTISING
     Dosage: UNK
     Route: 065
  6. CLARITHROMYCIN. [Concomitant]
     Active Substance: CLARITHROMYCIN
     Indication: RHODOCOCCUS INFECTION
  7. ERTAPENEM. [Concomitant]
     Active Substance: ERTAPENEM SODIUM
     Indication: RHODOCOCCUS INFECTION
     Dosage: UNK
     Route: 042
     Dates: start: 201804
  8. LEVOTHYROXINE. [Concomitant]
     Active Substance: LEVOTHYROXINE
     Indication: HYPOTHYROIDISM
     Dosage: UNK
     Route: 065
  9. LEVOFLOXACIN. [Suspect]
     Active Substance: LEVOFLOXACIN
     Indication: PNEUMONIA NECROTISING
     Dosage: UNK
     Route: 065
  10. LINEZOLID SOLUTION FOR INFUSION [Suspect]
     Active Substance: LINEZOLID
     Dosage: UNK
     Route: 042
     Dates: start: 201804, end: 201807
  11. LINEZOLID SOLUTION FOR INFUSION [Suspect]
     Active Substance: LINEZOLID
     Indication: RHODOCOCCUS INFECTION
     Dosage: UNK
     Route: 065
     Dates: start: 2018, end: 201807
  12. GENTAMICIN. [Suspect]
     Active Substance: GENTAMICIN
     Indication: RHODOCOCCUS INFECTION
     Dosage: UNK
     Route: 065
     Dates: start: 2018, end: 201901
  13. ERTAPENEM. [Concomitant]
     Active Substance: ERTAPENEM SODIUM
     Indication: BRAIN ABSCESS
     Dosage: UNK
     Route: 065
  14. RIFAMPICIN [Concomitant]
     Active Substance: RIFAMPIN
     Indication: ANTIBIOTIC THERAPY
  15. ENTECAVIR. [Concomitant]
     Active Substance: ENTECAVIR
     Indication: CHRONIC HEPATITIS B
     Dosage: UNK
     Route: 065
  16. DOXYCYCLINE. [Concomitant]
     Active Substance: DOXYCYCLINE
     Indication: BRAIN ABSCESS
     Dosage: UNK
     Route: 065
     Dates: start: 201901
  17. LEVOFLOXACIN. [Suspect]
     Active Substance: LEVOFLOXACIN
     Indication: ANTIBIOTIC THERAPY
     Dosage: UNK
     Route: 042
  18. CLARITHROMYCIN. [Concomitant]
     Active Substance: CLARITHROMYCIN
     Indication: BRAIN ABSCESS
     Dosage: UNK
     Route: 065
     Dates: start: 201807

REACTIONS (5)
  - Nephropathy toxic [Unknown]
  - Product use issue [Recovered/Resolved]
  - Infection [Unknown]
  - Myelosuppression [Unknown]
  - Ototoxicity [Unknown]

NARRATIVE: CASE EVENT DATE: 201907
